FAERS Safety Report 4696947-1 (Version None)
Quarter: 2005Q2

REPORT INFORMATION
  Report Type: 
  Country: None (occurrence: None)
  Receive Date: 20050620
  Receipt Date: 20050426
  Transmission Date: 20051028
  Serious: No
  Sender: FDA-Public Use
  Company Number: US-YAMANOUCHI-YPA20050226

PATIENT
  Age: 82 Year
  Sex: Male
  Weight: 83.9154 kg

DRUGS (4)
  1. VESICARE [Suspect]
     Indication: HYPERTONIC BLADDER
     Dosage: 5 MG QD PO
     Route: 048
     Dates: start: 20050311, end: 20050410
  2. METFORMIN [Concomitant]
  3. GLYBURIDE [Concomitant]
  4. GEMFIBROZIL [Concomitant]

REACTIONS (1)
  - DRUG INEFFECTIVE [None]
